FAERS Safety Report 7842842-6 (Version None)
Quarter: 2011Q4

REPORT INFORMATION
  Report Type: 
  Country: None (occurrence: None)
  Receive Date: 20111025
  Receipt Date: 20111021
  Transmission Date: 20120403
  Serious: Yes (Other)
  Sender: FDA-Public Use
  Company Number: JP-PFIZER INC-2011255958

PATIENT
  Age: 54 Year
  Sex: Female

DRUGS (15)
  1. PURSENNID [Concomitant]
     Dosage: 24MG/ DAY
     Dates: start: 20100701
  2. SALIGREN [Concomitant]
     Dosage: 90MG/ DAY
     Dates: start: 20100701
  3. BAKUMONDOUTO [Concomitant]
     Dosage: 27MG/ DAY
     Dates: start: 20100701
  4. SEROQUEL [Concomitant]
     Dosage: 50MG/ DAY
     Dates: start: 20100701
  5. ZOLOFT [Suspect]
     Dosage: 25 MG/DAY
     Route: 048
     Dates: start: 20100701
  6. LORAZEPAM [Concomitant]
     Dosage: 0.5MG/ DAY
     Route: 048
     Dates: start: 20100701
  7. JUVELA NICOTINATE [Concomitant]
     Dosage: 600MG/ DAY
     Dates: start: 20100701
  8. INDOMETHACIN [Concomitant]
     Dosage: UNK
     Route: 062
     Dates: start: 20100701
  9. ABILIFY [Concomitant]
     Dosage: 3MG/ DAY
     Route: 048
     Dates: start: 20100701
  10. RILMAZAFONE HYDROCHLORIDE [Concomitant]
     Dosage: 2MG/ DAY
     Dates: start: 20100701
  11. SOMELIN [Concomitant]
     Dosage: 10MG/ DAY
     Dates: start: 20100701
  12. LITHIUM CARBONATE [Concomitant]
     Dosage: 600MG/ DAY
     Dates: start: 20100701
  13. AMEGYL [Concomitant]
     Dosage: 20MG/ DAY
     Route: 048
     Dates: start: 20100701
  14. ZOLOFT [Suspect]
     Indication: DEPRESSION
     Dosage: 50 MG/DAY
     Route: 048
     Dates: end: 20100101
  15. MILNACIPRAN HYDROCHLORIDE [Concomitant]
     Dosage: 30MG/ DAY
     Route: 048
     Dates: start: 20100701

REACTIONS (1)
  - UTERINE HAEMORRHAGE [None]
